FAERS Safety Report 13939460 (Version 2)
Quarter: 2017Q3

REPORT INFORMATION
  Report Type: Spontaneous
  Country: US (occurrence: US)
  Receive Date: 20170906
  Receipt Date: 20170920
  Transmission Date: 20171127
  Serious: No
  Sender: FDA-Public Use
  Company Number: US-PFIZER INC-2017335411

PATIENT
  Age: 66 Year
  Sex: Female
  Weight: 62.6 kg

DRUGS (28)
  1. ZOFRAN [Concomitant]
     Active Substance: ONDANSETRON HYDROCHLORIDE
     Dosage: 4 MG, AS NEEDED [EVERY 8 (EIGHT) HOURS]
     Route: 048
  2. VOLTAREN [Concomitant]
     Active Substance: DICLOFENAC SODIUM
     Dosage: 4 G, AS NEEDED 4 (FOUR) TIMES DAILY
     Route: 061
  3. KONSYL ORIGINAL FORMULA PSYLLIUM FIBER [Concomitant]
     Active Substance: PSYLLIUM HUSK
     Dosage: UNK UNK, DAILY
     Route: 048
  4. MURO 128 [Concomitant]
     Active Substance: SODIUM CHLORIDE
     Dosage: 2 GTT, 2X/DAY [1 DROP IN BOTH EYES TWICE DAILY]
     Route: 047
  5. KLONOPIN [Concomitant]
     Active Substance: CLONAZEPAM
     Dosage: 1 MG, AS NEEDED (AT BEDTIME)
     Route: 048
     Dates: start: 20170823
  6. VITAMIN B12 [Concomitant]
     Active Substance: CYANOCOBALAMIN
     Dosage: 1000 UG, DAILY
     Route: 060
  7. ASMANEX [Concomitant]
     Active Substance: MOMETASONE FUROATE
     Dosage: 220 UG, 2X/DAY [AEPB]
  8. MIRALAX [Concomitant]
     Active Substance: POLYETHYLENE GLYCOL 3350
     Dosage: 17 G, DAILY
     Route: 048
  9. SENOKOT-S [Concomitant]
     Active Substance: DOCUSATE SODIUM\SENNOSIDES
     Indication: CONSTIPATION
     Dosage: 1 DF, AS NEEDED [DOCUSATE SODIUM 50 MG, SENNOSIDE A+B 8.6 MG]
     Route: 048
  10. SYNTHROID [Concomitant]
     Active Substance: LEVOTHYROXINE SODIUM
     Dosage: 137 UG, DAILY
     Route: 048
  11. LYRICA [Suspect]
     Active Substance: PREGABALIN
     Dosage: 50 MG, 2X/DAY [I TOOK A MORNING AND AN EVENING DOSE]
     Route: 048
     Dates: start: 20170718
  12. ERGOCALCIFEROL. [Concomitant]
     Active Substance: ERGOCALCIFEROL
     Dosage: 50000 IU, WEEKLY
     Route: 048
  13. PROTONIX [Concomitant]
     Active Substance: PANTOPRAZOLE SODIUM
     Dosage: 40 MG, DAILY
     Route: 048
  14. SINGULAIR [Concomitant]
     Active Substance: MONTELUKAST SODIUM
     Dosage: 10 MG, 1X/DAY [AT BEDTIME]
     Route: 048
  15. EFFEXOR XR [Concomitant]
     Active Substance: VENLAFAXINE HYDROCHLORIDE
     Dosage: 75 MG, DAILY
     Route: 048
  16. DILTIAZEM CD [Concomitant]
     Active Substance: DILTIAZEM
     Dosage: 180 MG, DAILY
     Route: 048
  17. FLORINEF ACETATE [Concomitant]
     Active Substance: FLUDROCORTISONE ACETATE
     Dosage: 0.1 MG, IN HOT WEATHER
  18. PROAIR RESPICLICK [Concomitant]
     Active Substance: ALBUTEROL SULFATE
     Dosage: UNK UNK, AS NEEDED [USE 1-2 PUFFS EVERY 4 TO 6 HOURS AS NEEDED, 108 (90 BASE) MCG/ACT AEPB]
  19. AFRIN [Concomitant]
     Active Substance: OXYMETAZOLINE
     Indication: NASAL DISORDER
     Dosage: UNK UNK, AS NEEDED [USE 1 SPRAY IN EACH NOSTRIL 2 (TWO) TIMES]
     Route: 045
  20. NORCO [Concomitant]
     Active Substance: ACETAMINOPHEN\HYDROCODONE BITARTRATE
     Dosage: 1 DF, AS NEEDED [HYDROCODONE BITARTRATE 5 MG, PARACETAMOL 325 MG; EVERY 8 HOUR]
     Route: 048
     Dates: start: 20170802
  21. FLORINEF ACETATE [Concomitant]
     Active Substance: FLUDROCORTISONE ACETATE
     Dosage: 0.05 MG, 1X/DAY
  22. ASPIRIN. [Concomitant]
     Active Substance: ASPIRIN
     Dosage: 81 MG, ALTERNATE DAY [EVERY OTHER DAY. AT BEDTIME]
     Route: 048
  23. LINZESS [Concomitant]
     Active Substance: LINACLOTIDE
     Indication: CONSTIPATION
     Dosage: 290 UG, DAILY
     Route: 048
  24. ANTIVERT [Concomitant]
     Active Substance: MECLIZINE HYDROCHLORIDE
     Dosage: 25 MG, AS NEEDED
     Route: 048
  25. ATIVAN [Concomitant]
     Active Substance: LORAZEPAM
     Indication: ANXIETY
     Dosage: 1 MG, AS NEEDED [2 (TWO) TIMES DAILY AS NEEDED]
     Route: 048
  26. NITROSTAT [Concomitant]
     Active Substance: NITROGLYCERIN
     Indication: CHEST PAIN
     Dosage: 0.4 MG, AS NEEDED
     Route: 060
  27. NASONEX [Concomitant]
     Active Substance: MOMETASONE FUROATE
     Dosage: UNK, DAILY [USE 2 SPRAY IN EACH NOSTRIL DAILY]
     Route: 045
  28. SYSTANE BALANCE [Concomitant]
     Active Substance: PROPYLENE GLYCOL
     Dosage: UNK, DAILY
     Route: 031

REACTIONS (5)
  - Clumsiness [Unknown]
  - Scan myocardial perfusion abnormal [Unknown]
  - Somnolence [Unknown]
  - Hypoacusis [Unknown]
  - Visual impairment [Unknown]
